FAERS Safety Report 6895379-5 (Version None)
Quarter: 2010Q3

REPORT INFORMATION
  Report Type: 
  Country: None (occurrence: None)
  Receive Date: 20100730
  Receipt Date: 20100730
  Transmission Date: 20110219
  Serious: Yes (Death, Hospitalization)
  Sender: FDA-Public Use
  Company Number: None

PATIENT
  Sex: Male
  Weight: 63.6 kg

DRUGS (3)
  1. CARBOPLATIN [Suspect]
     Dosage: 560 MG
     Dates: end: 20100123
  2. ERBITUX [Suspect]
     Dosage: 726 MG
     Dates: end: 20100723
  3. TAXOL [Suspect]
     Dosage: 366 MG
     Dates: end: 20100723

REACTIONS (7)
  - ACIDOSIS [None]
  - INTESTINAL ISCHAEMIA [None]
  - INTESTINAL PERFORATION [None]
  - NAUSEA [None]
  - PULMONARY EMBOLISM [None]
  - TACHYPNOEA [None]
  - VOMITING [None]
